FAERS Safety Report 13087966 (Version 1)
Quarter: 2017Q1

REPORT INFORMATION
  Report Type: Spontaneous
  Country: US (occurrence: US)
  Receive Date: 20170105
  Receipt Date: 20170105
  Transmission Date: 20170428
  Serious: No
  Sender: FDA-Public Use
  Company Number: US-ASTRAZENECA-2017SE00439

PATIENT
  Sex: Female
  Weight: 77.1 kg

DRUGS (2)
  1. SEROQUEL XR [Suspect]
     Active Substance: QUETIAPINE FUMARATE
     Indication: SLEEP DISORDER
     Dosage: QUETIAPINE FUMARATE 200 MG AT NIGHT
     Route: 048
     Dates: start: 201609
  2. SEROQUEL XR [Suspect]
     Active Substance: QUETIAPINE FUMARATE
     Indication: SLEEP DISORDER
     Route: 048
     Dates: start: 201509

REACTIONS (4)
  - Increased appetite [Unknown]
  - Off label use [Unknown]
  - Weight increased [Unknown]
  - Product use issue [Unknown]
